FAERS Safety Report 13940414 (Version 1)
Quarter: 2017Q3

REPORT INFORMATION
  Report Type: Spontaneous
  Country: IN (occurrence: IN)
  Receive Date: 20170906
  Receipt Date: 20170906
  Transmission Date: 20171127
  Serious: Yes (Congenital Anomaly, Other)
  Sender: FDA-Public Use
  Company Number: IN-MYLANLABS-2017M1053889

PATIENT
  Age: 8 Year
  Sex: Female
  Weight: 18 kg

DRUGS (2)
  1. PHENYTOIN. [Suspect]
     Active Substance: PHENYTOIN
     Indication: SEIZURE
     Route: 064
  2. PHENOBARBITAL. [Suspect]
     Active Substance: PHENOBARBITAL
     Indication: SEIZURE
     Dosage: 300 MG DAILY
     Route: 064

REACTIONS (2)
  - Foetal anticonvulsant syndrome [Recovered/Resolved]
  - Foetal exposure during pregnancy [Recovered/Resolved]
